FAERS Safety Report 7220186-3 (Version None)
Quarter: 2011Q1

REPORT INFORMATION
  Report Type: 
  Country: None (occurrence: None)
  Receive Date: 20110111
  Receipt Date: 20110104
  Transmission Date: 20110831
  Serious: Yes (Life-Threatening, Hospitalization, Other)
  Sender: FDA-Public Use
  Company Number: PHHY2011CH00826

PATIENT
  Age: 48 Year
  Sex: Male
  Weight: 70 kg

DRUGS (9)
  1. CLAMOXYL [Suspect]
     Dosage: UNK
     Route: 048
     Dates: start: 20101218
  2. PENICILLIN G [Suspect]
     Indication: BACTERIAL INFECTION
     Dosage: UNK
     Route: 042
     Dates: start: 20101110, end: 20101114
  3. TAZOBAC [Suspect]
     Indication: BACTERIAL INFECTION
     Dosage: 4.5 G X 3
     Route: 042
     Dates: start: 20101031, end: 20101110
  4. TAVANIC [Suspect]
     Indication: BACTERIAL INFECTION
     Dosage: 500 MG X 2
     Route: 048
     Dates: start: 20101114, end: 20101206
  5. DIFLUCAN [Suspect]
     Indication: CANDIDIASIS
     Dosage: UNK
     Dates: start: 20101101, end: 20101101
  6. RIMACTANE [Suspect]
     Indication: BACTERIAL INFECTION
     Dosage: 450 MG X 2
     Route: 048
     Dates: start: 20101114, end: 20101206
  7. CLAMOXYL [Suspect]
     Indication: BACTERIAL INFECTION
     Dosage: 750 MG X 3
     Route: 048
     Dates: start: 20101206, end: 20101214
  8. TAZOBAC [Suspect]
     Dosage: UNK
     Route: 042
     Dates: start: 20101215, end: 20101216
  9. VALTREX [Suspect]
     Indication: HERPES VIRUS INFECTION
     Dosage: UNK
     Dates: start: 20101031, end: 20101104

REACTIONS (7)
  - NEUTROPENIA [None]
  - THROMBOCYTOPENIA [None]
  - BLOOD CREATININE INCREASED [None]
  - AGRANULOCYTOSIS [None]
  - PANCYTOPENIA [None]
  - ANAEMIA [None]
  - LEUKOPENIA [None]
